FAERS Safety Report 8458245-X (Version None)
Quarter: 2012Q2

REPORT INFORMATION
  Report Type: 
  Country: None (occurrence: None)
  Receive Date: 20120615
  Receipt Date: 20120604
  Transmission Date: 20120825
  Serious: Yes (Disabling)
  Sender: FDA-Public Use
  Company Number: TIR-01146

PATIENT
  Age: 28 Year
  Sex: Female

DRUGS (2)
  1. LEVOTHYROXINE SODIUM [Suspect]
     Indication: THYROIDECTOMY
     Dosage: INTERMITTENT
     Dates: start: 20120101
  2. LEVOTHYROXINE SODIUM [Suspect]

REACTIONS (4)
  - LYMPHADENOPATHY [None]
  - PARALYSIS [None]
  - DRUG INEFFECTIVE [None]
  - PAIN [None]
